FAERS Safety Report 25709235 (Version 1)
Quarter: 2025Q3

REPORT INFORMATION
  Report Type: Spontaneous
  Country: EU (occurrence: EU)
  Receive Date: 20250821
  Receipt Date: 20250821
  Transmission Date: 20251020
  Serious: Yes (Other)
  Sender: NOVARTIS
  Company Number: EU-002147023-NVSC2025DE130113

PATIENT
  Age: 87 Year
  Sex: Male

DRUGS (4)
  1. HYDROCHLOROTHIAZIDE\VALSARTAN [Suspect]
     Active Substance: HYDROCHLOROTHIAZIDE\VALSARTAN
     Indication: Hypertension
     Dosage: 80 MG VALSARTAN AND 12.5 MG HYDROCHLOROTHIAZIDE (IN THE MORNING)
     Route: 065
     Dates: end: 2025
  2. HYDROCHLOROTHIAZIDE\VALSARTAN [Suspect]
     Active Substance: HYDROCHLOROTHIAZIDE\VALSARTAN
     Dosage: 160 MG VALSARTAN AND 12.5 MG HYDROCHLOROTHIAZIDE (IN THE MORNING)
     Route: 065
     Dates: start: 2025
  3. DIOVAN [Suspect]
     Active Substance: VALSARTAN
     Indication: Hypertension
     Dosage: 40 MG, BID (IN THE MORNING AND IN THE EVENING)
     Route: 065
     Dates: start: 2025, end: 2025
  4. DIOVAN [Suspect]
     Active Substance: VALSARTAN
     Dosage: 80 MG, QD (IN THE EVENING)
     Route: 065
     Dates: start: 2025, end: 2025

REACTIONS (5)
  - Neuropathy peripheral [Unknown]
  - Blood pressure increased [Recovering/Resolving]
  - Gait disturbance [Unknown]
  - Dizziness [Unknown]
  - Drug ineffective [Unknown]

NARRATIVE: CASE EVENT DATE: 20250101
